FAERS Safety Report 5289244-7 (Version None)
Quarter: 2007Q2

REPORT INFORMATION
  Report Type: 
  Country: None (occurrence: None)
  Receive Date: 20070403
  Receipt Date: 20070403
  Transmission Date: 20071010
  Serious: Yes (Hospitalization)
  Sender: FDA-Public Use
  Company Number: None

PATIENT
  Sex: Female
  Weight: 81.6475 kg

DRUGS (1)
  1. NORVASC [Suspect]
     Indication: HYPERTENSION
     Dosage: ONE TABLET DAILY PO
     Route: 048
     Dates: start: 20050715, end: 20050930

REACTIONS (15)
  - ANOREXIA [None]
  - ARTHROPOD BITE [None]
  - BLOOD PRESSURE INCREASED [None]
  - CHEST PAIN [None]
  - DEHYDRATION [None]
  - DELUSION [None]
  - FALL [None]
  - GAIT DISTURBANCE [None]
  - LETHARGY [None]
  - LYMPHADENOPATHY [None]
  - MUSCULOSKELETAL DISORDER [None]
  - PARANOIA [None]
  - RASH [None]
  - SALIVARY HYPERSECRETION [None]
  - WALKING AID USER [None]
